FAERS Safety Report 4646011-2 (Version None)
Quarter: 2005Q2

REPORT INFORMATION
  Report Type: 
  Country: None (occurrence: None)
  Receive Date: 20050422
  Receipt Date: 20050422
  Transmission Date: 20051028
  Serious: Yes (Other)
  Sender: FDA-Public Use
  Company Number: None

PATIENT
  Sex: Male
  Weight: 90.7194 kg

DRUGS (1)
  1. ISOSORBIDE MONONITRATE [Suspect]
     Dosage: 30 MG QD ORAL
     Route: 048
     Dates: start: 20041228, end: 20050202

REACTIONS (2)
  - PHARMACEUTICAL PRODUCT COMPLAINT [None]
  - PRURITUS GENERALISED [None]
